FAERS Safety Report 8183829-6 (Version None)
Quarter: 2012Q1

REPORT INFORMATION
  Report Type: 
  Country: None (occurrence: None)
  Receive Date: 20120305
  Receipt Date: 20120301
  Transmission Date: 20120608
  Serious: No
  Sender: FDA-Public Use
  Company Number: US-PFIZER INC-2012056869

PATIENT
  Sex: Female

DRUGS (1)
  1. ALAVERT [Suspect]
     Dosage: UNK
     Route: 048

REACTIONS (4)
  - INCORRECT DOSE ADMINISTERED [None]
  - FEELING ABNORMAL [None]
  - SENSATION OF HEAVINESS [None]
  - FATIGUE [None]
